FAERS Safety Report 10190000 (Version 2)
Quarter: 2014Q2

REPORT INFORMATION
  Report Type: Spontaneous
  Country: BR (occurrence: BR)
  Receive Date: 20140522
  Receipt Date: 20140522
  Transmission Date: 20141212
  Serious: Yes (Other)
  Sender: FDA-Public Use
  Company Number: BR-AMGEN INC.-BRASP2013005533

PATIENT
  Age: 36 Year
  Sex: Female
  Weight: 52 kg

DRUGS (3)
  1. ENBREL [Suspect]
     Indication: RHEUMATOID ARTHRITIS
     Dosage: 50 MG, ONCE WEEKLY
     Route: 058
     Dates: start: 201106
  2. ENBREL [Suspect]
     Dosage: UNK
     Route: 065
  3. VITAMIN D                          /00107901/ [Concomitant]
     Dosage: UNK

REACTIONS (4)
  - Pulmonary mass [Unknown]
  - Influenza [Unknown]
  - Prothrombin time abnormal [Unknown]
  - Petechiae [Unknown]
